FAERS Safety Report 5417735-4 (Version None)
Quarter: 2007Q3

REPORT INFORMATION
  Report Type: 
  Country: None (occurrence: None)
  Receive Date: 20070815
  Receipt Date: 20070815
  Transmission Date: 20080115
  Serious: Yes (Hospitalization)
  Sender: FDA-Public Use
  Company Number: None

PATIENT
  Sex: Male
  Weight: 81.6475 kg

DRUGS (12)
  1. RYTHMOL [Suspect]
     Indication: ATRIAL FIBRILLATION
     Dosage: PO  (THERAPY DATES: PRIOR TO ADMISSION)
     Route: 048
  2. LOPRESSOR [Suspect]
     Indication: HYPERTENSION
     Dosage: PO (THERAPY DATES: PRIOR TO ADMISSION)
     Route: 048
  3. CARDIZEM CD [Suspect]
  4. COUMADIN [Concomitant]
  5. METOCLOPRAMIDE [Concomitant]
  6. RENAGEL [Concomitant]
  7. NEPHROVITE [Concomitant]
  8. PRILOSEC [Concomitant]
  9. SENSIPAR [Concomitant]
  10. EPOGEN [Concomitant]
  11. LUNESTA [Concomitant]
  12. VICODIN [Concomitant]

REACTIONS (2)
  - BRADYCARDIA [None]
  - INCORRECT DOSE ADMINISTERED [None]
